FAERS Safety Report 6786361-7 (Version None)
Quarter: 2010Q2

REPORT INFORMATION
  Report Type: 
  Country: None (occurrence: None)
  Receive Date: 20100623
  Receipt Date: 20100519
  Transmission Date: 20101027
  Serious: Yes (Other)
  Sender: FDA-Public Use
  Company Number: PHHY2010MX15452

PATIENT

DRUGS (1)
  1. MYCOPHENOLIC ACID [Suspect]
     Dosage: 360 MG, UNK

REACTIONS (3)
  - AZOTAEMIA [None]
  - BLOOD CREATININE INCREASED [None]
  - PROTEINURIA [None]
